FAERS Safety Report 5013464-X (Version None)
Quarter: 2006Q2

REPORT INFORMATION
  Report Type: 
  Country: None (occurrence: None)
  Receive Date: 20060525
  Receipt Date: 20060512
  Transmission Date: 20061013
  Serious: Yes (Other)
  Sender: FDA-Public Use
  Company Number: 2006065323

PATIENT
  Age: 36 Year
  Sex: Female

DRUGS (2)
  1. BEXTRA [Suspect]
     Indication: PAIN
     Dosage: 10 MG (10 MG, 1 IN 1 D),
     Dates: start: 20050329, end: 20050412
  2. PENICILLIN-VK [Suspect]
     Indication: TOOTH ABSCESS
     Dosage: 1500 MG (500 MG, 3 IN 1 D), ORAL
     Route: 048
     Dates: start: 20050101

REACTIONS (3)
  - HYPERSENSITIVITY [None]
  - STEVENS-JOHNSON SYNDROME [None]
  - TOOTH ABSCESS [None]
